FAERS Safety Report 13391676 (Version 1)
Quarter: 2017Q1

REPORT INFORMATION
  Report Type: Spontaneous
  Country: US (occurrence: US)
  Receive Date: 20170331
  Receipt Date: 20170331
  Transmission Date: 20170429
  Serious: Yes (Other)
  Sender: FDA-Public Use
  Company Number: US-PFIZER INC-2017136545

PATIENT
  Age: 34 Year
  Sex: Female
  Weight: 73 kg

DRUGS (1)
  1. EFFEXOR XR [Suspect]
     Active Substance: VENLAFAXINE HYDROCHLORIDE
     Indication: DEPRESSION
     Dosage: 75 MG, 1X/DAY
     Dates: start: 2016

REACTIONS (8)
  - Withdrawal syndrome [Unknown]
  - Obsessive-compulsive personality disorder [Not Recovered/Not Resolved]
  - Suicidal ideation [Unknown]
  - Gambling disorder [Not Recovered/Not Resolved]
  - Hypertension [Not Recovered/Not Resolved]
  - Theft [Unknown]
  - Abnormal behaviour [Unknown]
  - Apathy [Unknown]

NARRATIVE: CASE EVENT DATE: 20170317
